FAERS Safety Report 7126215-X (Version None)
Quarter: 2010Q4

REPORT INFORMATION
  Report Type: 
  Country: None (occurrence: None)
  Receive Date: 20101129
  Receipt Date: 20100920
  Transmission Date: 20110411
  Serious: Yes (Hospitalization)
  Sender: FDA-Public Use
  Company Number: B0685982A

PATIENT
  Sex: Female
  Weight: 67 kg

DRUGS (1)
  1. OFATUMUMAB [Suspect]
     Dosage: 1000MG MONTHLY
     Route: 042
     Dates: start: 20100712, end: 20100910

REACTIONS (6)
  - BLOOD CALCIUM DECREASED [None]
  - BLOOD MAGNESIUM DECREASED [None]
  - BLOOD POTASSIUM DECREASED [None]
  - FEBRILE NEUTROPENIA [None]
  - MUCOSAL INFLAMMATION [None]
  - RENAL TUBULAR DISORDER [None]
